FAERS Safety Report 10868592 (Version 4)
Quarter: 2015Q2

REPORT INFORMATION
  Report Type: Report from Study
  Country: US (occurrence: US)
  Receive Date: 20150225
  Receipt Date: 20150611
  Transmission Date: 20150821
  Serious: Yes (Other)
  Sender: FDA-Public Use
  Company Number: PHEH2015US003507

PATIENT
  Age: 32 Year
  Sex: Male

DRUGS (6)
  1. TRAZODONE [Concomitant]
     Active Substance: TRAZODONE HYDROCHLORIDE
     Indication: SLEEP DISORDER
     Dosage: 50 MG, QHS
     Route: 065
     Dates: start: 20150127
  2. CEPHALEXIN. [Concomitant]
     Active Substance: CEPHALEXIN
     Indication: PRODUCT USED FOR UNKNOWN INDICATION
     Dosage: 500 MG, UNK
     Route: 065
  3. PERCOCET [Concomitant]
     Active Substance: ACETAMINOPHEN\OXYCODONE HYDROCHLORIDE
     Indication: ARTHRALGIA
     Dosage: 5/325, EVERY 6 DAY
     Route: 065
     Dates: start: 201309
  4. TASIGNA [Suspect]
     Active Substance: NILOTINIB
     Indication: CHRONIC MYELOID LEUKAEMIA
     Dosage: 400 MG, BID
     Route: 048
     Dates: start: 201309
  5. TASIGNA [Suspect]
     Active Substance: NILOTINIB
     Dosage: 2 DF (200 MG X 2 CAPSULE EVERY 12 HOURS), BID
     Route: 048
  6. TASIGNA [Suspect]
     Active Substance: NILOTINIB
     Dosage: 800 MG, UNK
     Route: 048

REACTIONS (34)
  - Dyspnoea exertional [Unknown]
  - Rhinorrhoea [Unknown]
  - Rectal haemorrhage [Recovering/Resolving]
  - Gait disturbance [Unknown]
  - Dysphagia [Unknown]
  - Myopia [Unknown]
  - Abdominal pain upper [Not Recovered/Not Resolved]
  - Diarrhoea [Unknown]
  - Malaise [Unknown]
  - Nasal congestion [Unknown]
  - Cough [Unknown]
  - Nasopharyngitis [Unknown]
  - Haematochezia [Unknown]
  - Deafness [Unknown]
  - Lower respiratory tract infection [Unknown]
  - Fatigue [Not Recovered/Not Resolved]
  - Musculoskeletal pain [Unknown]
  - Melaena [Unknown]
  - Nausea [Unknown]
  - Pain in extremity [Unknown]
  - Productive cough [Unknown]
  - Gastrointestinal motility disorder [Unknown]
  - Eating disorder [Unknown]
  - Arthralgia [Unknown]
  - Cognitive disorder [Not Recovered/Not Resolved]
  - Amnesia [Unknown]
  - Ear discomfort [Unknown]
  - Rash [Not Recovered/Not Resolved]
  - Joint stiffness [Unknown]
  - Upper respiratory tract infection [Unknown]
  - Insomnia [Unknown]
  - Visual acuity reduced [Unknown]
  - Depression [Unknown]
  - Asthenia [Unknown]

NARRATIVE: CASE EVENT DATE: 201309
